FAERS Safety Report 5126127-7 (Version None)
Quarter: 2006Q3

REPORT INFORMATION
  Report Type: 
  Country: None (occurrence: None)
  Receive Date: 20060811
  Receipt Date: 20060608
  Transmission Date: 20061208
  Serious: No
  Sender: FDA-Public Use
  Company Number: S06-USA-02225-01

PATIENT
  Age: 70 Year
  Sex: Male

DRUGS (7)
  1. NAMENDA [Suspect]
     Indication: DEMENTIA
     Dosage: 10 MG BID PO
     Route: 048
     Dates: start: 20060605
  2. NAMENDA [Suspect]
     Indication: DEMENTIA
     Dosage: 5 MG QD PO
     Route: 048
     Dates: start: 20060515, end: 20060521
  3. NAMENDA [Suspect]
     Indication: DEMENTIA
     Dosage: 5 MG BID PO
     Route: 048
     Dates: start: 20060522, end: 20060528
  4. NAMENDA [Suspect]
     Indication: DEMENTIA
     Dosage: 15 MG QD PO
     Route: 048
     Dates: start: 20060529, end: 20060604
  5. GLUCOSAMINE/CHONDROITIN [Concomitant]
  6. NEXIUM [Concomitant]
  7. RYNATAN (PHENYLEPHRINE/CHLORPHENIRAMINE/PYRILAMINE) [Concomitant]

REACTIONS (2)
  - HEADACHE [None]
  - VISION BLURRED [None]
